FAERS Safety Report 24393125 (Version 1)
Quarter: 2024Q4

REPORT INFORMATION
  Report Type: Spontaneous
  Country: TR (occurrence: TR)
  Receive Date: 20241003
  Receipt Date: 20241003
  Transmission Date: 20250115
  Serious: Yes (Hospitalization)
  Sender: NOVARTIS
  Company Number: TR-002147023-NVSC2024TR194323

PATIENT
  Age: 17 Year
  Sex: Male

DRUGS (11)
  1. CARBAMAZEPINE [Suspect]
     Active Substance: CARBAMAZEPINE
     Indication: Autism spectrum disorder
     Dosage: 400 MG D?1
     Route: 065
  2. CARBAMAZEPINE [Suspect]
     Active Substance: CARBAMAZEPINE
     Dosage: 800 MG D?1
     Route: 065
  3. AMISULPRIDE [Suspect]
     Active Substance: AMISULPRIDE
     Indication: Autism spectrum disorder
     Dosage: 400 MG D?1
     Route: 065
  4. AMISULPRIDE [Suspect]
     Active Substance: AMISULPRIDE
     Dosage: 800 MG D?1
     Route: 065
  5. QUETIAPINE [Suspect]
     Active Substance: QUETIAPINE
     Indication: Autism spectrum disorder
     Dosage: 900 MG D?1
     Route: 065
  6. TRAZODONE [Suspect]
     Active Substance: TRAZODONE HYDROCHLORIDE
     Indication: Autism spectrum disorder
     Dosage: 200 MG D?1
     Route: 065
  7. CLONAZEPAM [Suspect]
     Active Substance: CLONAZEPAM
     Indication: Autism spectrum disorder
     Dosage: 2 MG D?1
     Route: 065
  8. HYDROXYZINE [Suspect]
     Active Substance: HYDROXYZINE HYDROCHLORIDE
     Indication: Autism spectrum disorder
     Dosage: 75 MG D?1
     Route: 065
  9. BIPERIDEN [Suspect]
     Active Substance: BIPERIDEN
     Indication: Autism spectrum disorder
     Dosage: 4 MG D?1
     Route: 065
  10. BIPERIDEN [Suspect]
     Active Substance: BIPERIDEN
     Dosage: 6 MG D?1
     Route: 065
  11. HALOPERIDOL [Suspect]
     Active Substance: HALOPERIDOL
     Indication: Autism spectrum disorder
     Dosage: 15 MG D?1
     Route: 065

REACTIONS (5)
  - Abnormal behaviour [Recovering/Resolving]
  - Autism spectrum disorder [Recovering/Resolving]
  - Parkinsonism [Recovering/Resolving]
  - Aggression [Unknown]
  - Product use in unapproved indication [Unknown]
